FAERS Safety Report 15258455 (Version 3)
Quarter: 2018Q3

REPORT INFORMATION
  Report Type: Spontaneous
  Country: US (occurrence: US)
  Receive Date: 20180809
  Receipt Date: 20180914
  Transmission Date: 20181010
  Serious: Yes (Other)
  Sender: FDA-Public Use
  Company Number: US-BIOGEN-2018BI00612399

PATIENT
  Age: 22 Year
  Sex: Female

DRUGS (1)
  1. TYSABRI [Suspect]
     Active Substance: NATALIZUMAB
     Indication: MULTIPLE SCLEROSIS
     Dosage: INFUSED OVER 1 HOUR
     Route: 042
     Dates: start: 20180620

REACTIONS (25)
  - Major depression [Unknown]
  - Memory impairment [Not Recovered/Not Resolved]
  - Drug intolerance [Unknown]
  - Toe walking [Not Recovered/Not Resolved]
  - Peripheral swelling [Unknown]
  - Disturbance in attention [Not Recovered/Not Resolved]
  - Tremor [Unknown]
  - Sleep disorder [Unknown]
  - Alopecia [Unknown]
  - Blister [Unknown]
  - Drug dose omission [Unknown]
  - Loss of control of legs [Not Recovered/Not Resolved]
  - Muscle tightness [Not Recovered/Not Resolved]
  - Vomiting [Unknown]
  - Headache [Unknown]
  - Anxiety [Unknown]
  - Affective disorder [Unknown]
  - Dry skin [Unknown]
  - Diarrhoea [Recovered/Resolved]
  - Pain in extremity [Unknown]
  - Muscle spasticity [Not Recovered/Not Resolved]
  - Stress [Unknown]
  - Feeling abnormal [Unknown]
  - Skin erosion [Unknown]
  - Nausea [Unknown]

NARRATIVE: CASE EVENT DATE: 201806
